FAERS Safety Report 18420327 (Version 1)
Quarter: 2020Q4

REPORT INFORMATION
  Report Type: Spontaneous
  Country: US (occurrence: US)
  Receive Date: 20201023
  Receipt Date: 20201023
  Transmission Date: 20210114
  Serious: No
  Sender: FDA-Public Use
  Company Number: US-ELI_LILLY_AND_COMPANY-US202005010434

PATIENT
  Sex: Female

DRUGS (1)
  1. EMGALITY [Suspect]
     Active Substance: GALCANEZUMAB-GNLM
     Indication: PRODUCT USED FOR UNKNOWN INDICATION
     Dosage: 1 DOSAGE FORM, UNKNOWN
     Route: 065

REACTIONS (7)
  - Menstrual disorder [Unknown]
  - Alopecia [Unknown]
  - Dysmenorrhoea [Unknown]
  - Back pain [Unknown]
  - Arthralgia [Unknown]
  - Metrorrhagia [Unknown]
  - Weight increased [Unknown]
